FAERS Safety Report 12675610 (Version 1)
Quarter: 2016Q3

REPORT INFORMATION
  Report Type: Spontaneous
  Country: US (occurrence: US)
  Receive Date: 20160823
  Receipt Date: 20160823
  Transmission Date: 20161109
  Serious: Yes (Other)
  Sender: FDA-Public Use
  Company Number: US-BAYER-2016-161365

PATIENT
  Age: 38 Year
  Sex: Female

DRUGS (1)
  1. ALEVE [Suspect]
     Active Substance: NAPROXEN SODIUM
     Indication: ANALGESIC THERAPY
     Dosage: UNK
     Route: 065

REACTIONS (5)
  - Haemorrhage [None]
  - Product use issue [None]
  - Abdominal distension [None]
  - Urticaria [None]
  - Wheezing [None]
